FAERS Safety Report 6073154-1 (Version None)
Quarter: 2009Q1

REPORT INFORMATION
  Report Type: 
  Country: None (occurrence: None)
  Receive Date: 20090203
  Receipt Date: 20090120
  Transmission Date: 20090719
  Serious: Yes (Hospitalization)
  Sender: FDA-Public Use
  Company Number: THYM-1000885

PATIENT
  Age: 66 Year
  Sex: Male

DRUGS (9)
  1. THYMOGLOBULINE        (ANTI-THYMOCYTE GLOBULIN (RABBIT)  SOLUTION FOR [Suspect]
     Indication: BONE MARROW FAILURE
     Dosage: 300 MG, QD, INTRAVENOUS
     Route: 042
     Dates: start: 20081009
  2. LASIX [Concomitant]
  3. NEUPOGEN [Concomitant]
  4. TRAMADOL HCL [Concomitant]
  5. VFEND [Concomitant]
  6. TAZOCILLINE (PIPERACILLIN SODIUM, TAZOBACTAM SODIUM) [Concomitant]
  7. TOPLEXIL (SODIUM BENZOATE) [Concomitant]
  8. XATRAL (ALFUZOSIN HYDROCHLORIDE) [Concomitant]
  9. HYDROCORTISONE (HYDROCORTISONE) [Concomitant]

REACTIONS (4)
  - CHILLS [None]
  - HYPERTHERMIA [None]
  - OXYGEN SATURATION DECREASED [None]
  - SYSTOLIC HYPERTENSION [None]
